FAERS Safety Report 18649922 (Version 1)
Quarter: 2020Q4

REPORT INFORMATION
  Report Type: Report from Study
  Country: US (occurrence: US)
  Receive Date: 20201222
  Receipt Date: 20201222
  Transmission Date: 20210114
  Serious: Yes (Other)
  Sender: FDA-Public Use
  Company Number: US-UCBSA-2020052395

PATIENT
  Age: 5 Decade
  Sex: Female

DRUGS (1)
  1. CERTOLIZUMAB PEGOL [Suspect]
     Active Substance: CERTOLIZUMAB PEGOL
     Indication: RHEUMATOID ARTHRITIS
     Dosage: 200 MILLIGRAM, EV 2 WEEKS(QOW)
     Route: 058
     Dates: end: 20200919

REACTIONS (4)
  - Surgery [Recovering/Resolving]
  - Rash pruritic [Recovering/Resolving]
  - Drug ineffective [Unknown]
  - Respiratory disorder [Recovering/Resolving]

NARRATIVE: CASE EVENT DATE: 2020
